FAERS Safety Report 7918572-9 (Version None)
Quarter: 2011Q4

REPORT INFORMATION
  Report Type: 
  Country: None (occurrence: None)
  Receive Date: 20111116
  Receipt Date: 20111104
  Transmission Date: 20120403
  Serious: Yes (Other)
  Sender: FDA-Public Use
  Company Number: MX-SANOFI-AVENTIS-2011SA072712

PATIENT
  Age: 48 Year
  Sex: Female
  Weight: 64 kg

DRUGS (5)
  1. GLYBURIDE [Concomitant]
     Dates: start: 20070101, end: 20110919
  2. OPTISET [Suspect]
  3. GLIMEPIRIDE [Suspect]
  4. METFORMIN HCL [Concomitant]
     Dates: start: 20070101
  5. NPH INSULIN [Suspect]
     Dates: start: 20111004

REACTIONS (1)
  - ACCIDENTAL OVERDOSE [None]
